FAERS Safety Report 19423960 (Version 1)
Quarter: 2021Q2

REPORT INFORMATION
  Report Type: Spontaneous
  Country: TW (occurrence: TW)
  Receive Date: 20210616
  Receipt Date: 20210616
  Transmission Date: 20210717
  Serious: Yes (Hospitalization, Other)
  Sender: FDA-Public Use
  Company Number: TW-PFIZER INC-2021647226

PATIENT
  Age: 59 Year
  Sex: Female

DRUGS (1)
  1. XELJANZ XR [Suspect]
     Active Substance: TOFACITINIB CITRATE
     Indication: RHEUMATOID ARTHRITIS
     Dosage: 1 DF, 1X/DAY (11 MG)
     Route: 048
     Dates: end: 20210529

REACTIONS (5)
  - Pancreatitis [Recovering/Resolving]
  - Cholecystitis [Recovering/Resolving]
  - Disease recurrence [Recovering/Resolving]
  - Urinary tract infection [Recovering/Resolving]
  - Gastric ulcer [Recovering/Resolving]
